FAERS Safety Report 15626381 (Version 1)
Quarter: 2018Q4

REPORT INFORMATION
  Report Type: Other
  Country: BR (occurrence: BR)
  Receive Date: 20181116
  Receipt Date: 20181116
  Transmission Date: 20190205
  Serious: Yes (Other)
  Sender: FDA-Public Use
  Company Number: BR-ASPEN-GLO2018BR011576

PATIENT
  Age: 20 Year
  Sex: Male
  Weight: 80 kg

DRUGS (5)
  1. DECA-DURABOLIN [Suspect]
     Active Substance: NANDROLONE DECANOATE
     Indication: PRODUCT USED FOR UNKNOWN INDICATION
     Dosage: 50 MG/ML
     Route: 065
  2. HEMOGENIN [Suspect]
     Active Substance: OXYMETHOLONE
     Indication: PRODUCT USED FOR UNKNOWN INDICATION
     Dosage: 50 MG, 1 DOSE 12 HOURS
     Route: 065
  3. SUSTANON [Suspect]
     Active Substance: TESTOSTERONE
     Indication: PRODUCT USED FOR UNKNOWN INDICATION
     Dosage: 250 MG/ML
     Route: 065
  4. DECA-DURABOLIN [Suspect]
     Active Substance: NANDROLONE DECANOATE
     Dosage: 50 MG/ML
     Route: 065
  5. SUSTANON [Suspect]
     Active Substance: TESTOSTERONE
     Dosage: 250 MG/ML
     Route: 065

REACTIONS (3)
  - Drug abuse [Unknown]
  - Hypogonadism male [Recovering/Resolving]
  - Hypothalamic pituitary adrenal axis suppression [Unknown]
